FAERS Safety Report 9787513 (Version 1)
Quarter: 2013Q4

REPORT INFORMATION
  Report Type: Spontaneous
  Country: US (occurrence: US)
  Receive Date: 20131230
  Receipt Date: 20131230
  Transmission Date: 20140711
  Serious: Yes (Other)
  Sender: FDA-Public Use
  Company Number: US-ROCHE-1326250

PATIENT
  Sex: Female

DRUGS (1)
  1. ERIVEDGE [Suspect]
     Indication: NEOPLASM SKIN
     Route: 048
     Dates: start: 20131007, end: 201312

REACTIONS (1)
  - Cholestasis [Not Recovered/Not Resolved]
